FAERS Safety Report 13886340 (Version 1)
Quarter: 2017Q3

REPORT INFORMATION
  Report Type: Spontaneous
  Country: GB (occurrence: GB)
  Receive Date: 20170821
  Receipt Date: 20170821
  Transmission Date: 20171127
  Serious: Yes (Other)
  Sender: FDA-Public Use
  Company Number: GB-TEVA-796751ACC

PATIENT
  Age: 37 Year
  Sex: Male
  Weight: 82 kg

DRUGS (5)
  1. IBUPROFEN. [Concomitant]
     Active Substance: IBUPROFEN
     Dates: start: 20170704
  2. CLARITHROMYCIN. [Suspect]
     Active Substance: CLARITHROMYCIN
     Indication: DIARRHOEA
     Dosage: 1000 MILLIGRAM DAILY;
     Route: 048
     Dates: start: 20170630, end: 20170704
  3. PROCHLORPERAZINE. [Concomitant]
     Active Substance: PROCHLORPERAZINE
     Dosage: UNDER TOP LIP.
     Route: 002
     Dates: start: 20170627
  4. CLARITHROMYCIN. [Suspect]
     Active Substance: CLARITHROMYCIN
     Dates: start: 20170630
  5. LOPERAMIDE [Concomitant]
     Active Substance: LOPERAMIDE
     Dosage: TAKE ONE AFTER...
     Dates: start: 20170627

REACTIONS (5)
  - Condition aggravated [Unknown]
  - Chest pain [Unknown]
  - Hypersensitivity [Unknown]
  - Pyrexia [Unknown]
  - Headache [Unknown]

NARRATIVE: CASE EVENT DATE: 20170703
